FAERS Safety Report 25818296 (Version 1)
Quarter: 2025Q3

REPORT INFORMATION
  Report Type: Spontaneous
  Country: US (occurrence: None)
  Receive Date: 20250918
  Receipt Date: 20250918
  Transmission Date: 20251020
  Serious: Yes (Hospitalization)
  Sender: FDA-CTU
  Company Number: None

PATIENT
  Age: 69 Year
  Sex: Male
  Weight: 106.2 kg

DRUGS (2)
  1. CISPLATIN [Suspect]
     Active Substance: CISPLATIN
     Dates: end: 20250219
  2. GEMCITABINE HYDROCHLORIDE [Suspect]
     Active Substance: GEMCITABINE HYDROCHLORIDE
     Dates: end: 20250226

REACTIONS (14)
  - Carotid artery stenosis [None]
  - Balance disorder [None]
  - Fall [None]
  - Tremor [None]
  - Dizziness [None]
  - Coordination abnormal [None]
  - Hypotension [None]
  - Haemoglobin decreased [None]
  - Platelet count decreased [None]
  - Romberg test positive [None]
  - Gait disturbance [None]
  - Red blood cell transfusion [None]
  - Magnetic resonance imaging head abnormal [None]
  - Spinal osteoarthritis [None]

NARRATIVE: CASE EVENT DATE: 20250304
